FAERS Safety Report 9209285 (Version 1)
Quarter: 2013Q1

REPORT INFORMATION
  Report Type: Spontaneous
  Country: US (occurrence: None)
  Receive Date: 20120817
  Receipt Date: 20120817
  Transmission Date: 20140127
  Serious: Yes (Other)
  Sender: FDA-Public Use
  Company Number: 2012-0021

PATIENT
  Sex: 0

DRUGS (1)
  1. CITALOPRAM [Suspect]

REACTIONS (1)
  - Congenital central nervous system anomaly [None]
